FAERS Safety Report 7522387-3 (Version None)
Quarter: 2011Q2

REPORT INFORMATION
  Report Type: 
  Country: None (occurrence: None)
  Receive Date: 20110603
  Receipt Date: 20110520
  Transmission Date: 20111010
  Serious: Yes (Other)
  Sender: FDA-Public Use
  Company Number: US-ELI_LILLY_AND_COMPANY-US200707000533

PATIENT
  Age: 61 Year
  Sex: Male

DRUGS (8)
  1. ZYPREXA [Suspect]
     Dosage: 5 MG, UNK
  2. CYMBALTA [Suspect]
     Indication: DEPRESSION
     Dosage: 30 MG, BID
  3. CYMBALTA [Suspect]
     Dosage: 30 MG, QD
  4. ALCOHOL [Concomitant]
  5. ZYPREXA [Suspect]
     Dosage: 30 MG, QD
     Dates: start: 20050101
  6. ZYPREXA [Suspect]
     Dosage: 7.5 MG, UNK
  7. GEODON [Concomitant]
  8. ZYPREXA [Suspect]
     Indication: DEPRESSION
     Dosage: 15 MG, DAILY (1/D)
     Dates: start: 20050603, end: 20051122

REACTIONS (43)
  - HEPATIC HAEMORRHAGE [None]
  - MULTI-ORGAN FAILURE [None]
  - ECONOMIC PROBLEM [None]
  - SEXUAL DYSFUNCTION [None]
  - CONCUSSION [None]
  - HEAD INJURY [None]
  - CORRECTIVE LENS USER [None]
  - DRUG INEFFECTIVE [None]
  - ASTHENIA [None]
  - PLATELET COUNT DECREASED [None]
  - BRAIN INJURY [None]
  - ANXIETY [None]
  - MEDICATION ERROR [None]
  - SOMNOLENCE [None]
  - OFF LABEL USE [None]
  - FLANK PAIN [None]
  - BLINDNESS TRANSIENT [None]
  - VISUAL IMPAIRMENT [None]
  - DIZZINESS [None]
  - TACHYPHRENIA [None]
  - WEIGHT INCREASED [None]
  - FEELING HOT [None]
  - OVERDOSE [None]
  - ANAEMIA [None]
  - HAEMATOSPERMIA [None]
  - HAEMATOCHEZIA [None]
  - ASPERMIA [None]
  - DIABETES MELLITUS [None]
  - HEPATIC FAILURE [None]
  - SYNCOPE [None]
  - HEARING IMPAIRED [None]
  - HAEMATURIA [None]
  - EPISTAXIS [None]
  - FEELING ABNORMAL [None]
  - DYSPNOEA [None]
  - LIVER INJURY [None]
  - HAEMORRHAGE [None]
  - GASTROINTESTINAL HAEMORRHAGE [None]
  - DISTURBANCE IN ATTENTION [None]
  - FALL [None]
  - AMNESIA [None]
  - ORGASM ABNORMAL [None]
  - DEMENTIA ALZHEIMER'S TYPE [None]
